FAERS Safety Report 19240344 (Version 5)
Quarter: 2023Q4

REPORT INFORMATION
  Report Type: Spontaneous
  Country: DE (occurrence: DE)
  Receive Date: 20210511
  Receipt Date: 20231107
  Transmission Date: 20240110
  Serious: Yes (Hospitalization, Other)
  Sender: FDA-Public Use
  Company Number: None

PATIENT
  Age: 62 Year
  Sex: Female
  Weight: 65 kg

DRUGS (11)
  1. MIRTAZAPINE [Suspect]
     Active Substance: MIRTAZAPINE
     Indication: Insomnia
     Dosage: TREATMENT TRIAL
     Route: 065
  2. PRAMIPEXOLE [Suspect]
     Active Substance: PRAMIPEXOLE
     Indication: Parkinson^s disease
     Route: 065
  3. AGOMELATINE [Suspect]
     Active Substance: AGOMELATINE
     Indication: Insomnia
     Dosage: 50 MILLIGRAM, QD
     Route: 065
  4. RASAGILINE [Interacting]
     Active Substance: RASAGILINE
     Indication: Parkinson^s disease
     Dosage: UNK
     Route: 065
  5. LEVOTHYROXINE [Suspect]
     Active Substance: LEVOTHYROXINE
     Indication: Hypothyroidism
     Dosage: UNK
     Route: 065
  6. BENSERAZIDE\LEVODOPA [Suspect]
     Active Substance: BENSERAZIDE\LEVODOPA
     Indication: Parkinson^s disease
     Dosage: 200+50 MG/DAY
     Route: 065
  7. RANOLAZINE [Suspect]
     Active Substance: RANOLAZINE
     Indication: Hypertension
     Dosage: UNK
     Route: 065
  8. TRAZODONE HYDROCHLORIDE [Suspect]
     Active Substance: TRAZODONE HYDROCHLORIDE
     Indication: Insomnia
     Dosage: UNKNOWN
     Route: 065
  9. MOCLOBEMIDE [Interacting]
     Active Substance: MOCLOBEMIDE
     Indication: Depressive symptom
     Dosage: DOSE INCREASED ABOUT 1 YEAR PRIOR TO ADMISSION
     Route: 065
  10. AGOMELATINE [Concomitant]
     Active Substance: AGOMELATINE
     Indication: Insomnia
     Dosage: UNK
     Route: 065
  11. MIRTAZAPINE [Concomitant]
     Active Substance: MIRTAZAPINE
     Indication: Insomnia
     Dosage: TREATMENT TRIAL
     Route: 065

REACTIONS (8)
  - Drug interaction [Unknown]
  - Toxicity to various agents [Recovering/Resolving]
  - Autonomic nervous system imbalance [Recovered/Resolved]
  - Serotonin syndrome [Recovered/Resolved]
  - Serum serotonin increased [Recovered/Resolved]
  - Drug ineffective for unapproved indication [Unknown]
  - Condition aggravated [Recovered/Resolved]
  - Drug level increased [Recovered/Resolved]
